FAERS Safety Report 22215798 (Version 1)
Quarter: 2023Q2

REPORT INFORMATION
  Report Type: Report from Study
  Country: DE (occurrence: DE)
  Receive Date: 20230417
  Receipt Date: 20230417
  Transmission Date: 20230722
  Serious: Yes (Other)
  Sender: FDA-Public Use
  Company Number: DE-CELLTRION INC.-2023DE007590

PATIENT

DRUGS (4)
  1. TRASTUZUMAB [Suspect]
     Active Substance: TRASTUZUMAB
     Indication: Breast cancer
     Dosage: ON 05/DEC//2022, THE PATIENT RECEIVED LAST DOSE OF TRASTUZUMAB PRIOR TO AE WAS 158 MG.
     Dates: start: 20221114, end: 20230109
  2. PERTUZUMAB [Suspect]
     Active Substance: PERTUZUMAB
     Indication: Breast cancer
     Dosage: ON 28/NOV/2022, THE PATIENT RECEIVED LAST DOSE OF PERTUZUMAB PRIOR TO AE WAS 420 MG.
     Dates: start: 20221128, end: 20230109
  3. PACLITAXEL [Suspect]
     Active Substance: PACLITAXEL
     Indication: Breast cancer
     Dosage: ON 05/DEC//2022, THE PATIENT RECEIVED LAST DOSE OF PACLITAXEL PRIOR TO AE WAS 144.8 MG.
     Dates: start: 20221114, end: 20230109
  4. PREDNISOLONE [Concomitant]
     Active Substance: PREDNISOLONE
     Dosage: 50 MG
     Dates: start: 202302, end: 202303

REACTIONS (1)
  - Polyneuropathy [Not Recovered/Not Resolved]

NARRATIVE: CASE EVENT DATE: 20221201
